FAERS Safety Report 10003717 (Version 2)
Quarter: 2014Q1

REPORT INFORMATION
  Report Type: Spontaneous
  Country: US (occurrence: US)
  Receive Date: 20140312
  Receipt Date: 20140312
  Transmission Date: 20141002
  Serious: Yes (Other)
  Sender: FDA-Public Use
  Company Number: US-INCYTE CORPORATION-2013IN002769

PATIENT
  Age: 67 Year
  Sex: Female
  Weight: 74.83 kg

DRUGS (14)
  1. JAKAFI [Suspect]
     Indication: MYELOFIBROSIS
     Dosage: 20 MG, BID
     Route: 048
     Dates: start: 20130823, end: 20131008
  2. JAKAFI [Suspect]
     Dosage: 20 MG, QD
     Route: 048
     Dates: start: 20131008, end: 20131022
  3. JAKAFI [Suspect]
     Dosage: 20 MG, QOD
     Route: 048
     Dates: start: 20131022
  4. CELEBREX [Concomitant]
  5. LASIX [Concomitant]
  6. ZANTAC [Concomitant]
  7. METOPROLOL [Concomitant]
  8. ALLOPURINOL [Concomitant]
  9. ZYRTEC [Concomitant]
  10. IMODIUM [Concomitant]
  11. ASPIRIN LOW EC [Concomitant]
     Dosage: 81
  12. CRANBERRY [Concomitant]
  13. SUPER  OMEGA- 3 [Concomitant]
  14. PLAVIX [Concomitant]

REACTIONS (2)
  - Haemoglobin decreased [Not Recovered/Not Resolved]
  - Weight increased [Unknown]
